FAERS Safety Report 7122150-1 (Version None)
Quarter: 2010Q4

REPORT INFORMATION
  Report Type: 
  Country: None (occurrence: None)
  Receive Date: 20101124
  Receipt Date: 20101119
  Transmission Date: 20110411
  Serious: Yes (Death, Hospitalization, Other)
  Sender: FDA-Public Use
  Company Number: US-BRISTOL-MYERS SQUIBB COMPANY-15403553

PATIENT
  Age: 60 Year
  Sex: Female

DRUGS (3)
  1. METOPROLOL TARTRATE [Suspect]
     Dosage: 1DF = 219 MICROG/ML
  2. AMLODIPINE [Suspect]
  3. NAPROXEN [Suspect]
     Dosage: 1 DOSAGE FORM=40(UNITS NOT SPEC)

REACTIONS (2)
  - HYPOTENSION [None]
  - OVERDOSE [None]
